FAERS Safety Report 8858917 (Version 1)
Quarter: 2012Q4

REPORT INFORMATION
  Report Type: 
  Country: US (occurrence: US)
  Receive Date: 20121024
  Receipt Date: 20121024
  Transmission Date: 20130627
  Serious: No
  Sender: FDA-Public Use
  Company Number: US-BAYER-2012-110237

PATIENT
  Age: 46 Year
  Sex: Female

DRUGS (1)
  1. CLIMARA [Suspect]
     Dosage: UNK
     Route: 059
     Dates: start: 20121011

REACTIONS (3)
  - Product adhesion issue [None]
  - Product adhesion issue [None]
  - Hot flush [Not Recovered/Not Resolved]
